FAERS Safety Report 9391134 (Version 3)
Quarter: 2013Q4

REPORT INFORMATION
  Report Type: Report from Study
  Country: JP (occurrence: JP)
  Receive Date: 20130709
  Receipt Date: 20131107
  Transmission Date: 20140711
  Serious: Yes (Death, Life-Threatening, Hospitalization, Other)
  Sender: FDA-Public Use
  Company Number: JP-AMGEN-JPNCT2013047693

PATIENT
  Age: 79 Year
  Sex: Male
  Weight: 53 kg

DRUGS (16)
  1. DARBEPOETIN ALFA [Suspect]
     Indication: NEPHROGENIC ANAEMIA
     Dosage: 60 MUG, Q2WK
     Route: 058
     Dates: start: 20101221, end: 20110608
  2. DARBEPOETIN ALFA [Suspect]
     Dosage: 40 MUG, Q2WK
     Route: 058
     Dates: start: 20110706, end: 20110928
  3. DARBEPOETIN ALFA [Suspect]
     Dosage: 60 MUG, Q2WK
     Route: 058
     Dates: start: 20111012, end: 20121010
  4. HERBESSER R [Concomitant]
     Dosage: UNK
     Route: 048
  5. ARTIST [Concomitant]
     Dosage: UNK
     Route: 048
  6. URINORM [Concomitant]
     Dosage: UNK
     Route: 048
  7. ZYLORIC [Concomitant]
     Dosage: UNK
     Route: 048
  8. DIART [Concomitant]
     Dosage: UNK
     Route: 048
  9. FLUITRAN [Concomitant]
     Dosage: UNK
     Route: 048
  10. MEDITRANS [Concomitant]
     Dosage: UNK
     Route: 061
  11. ATELEC [Concomitant]
     Dosage: UNK
     Route: 048
  12. CRESTOR [Concomitant]
     Dosage: UNK
     Route: 048
  13. SENNOSIDE [Concomitant]
     Dosage: UNK
     Route: 048
  14. BAYASPIRIN [Concomitant]
     Dosage: UNK
     Route: 048
  15. MICARDIS [Concomitant]
     Indication: GLOMERULONEPHRITIS CHRONIC
     Dosage: UNK
     Route: 048
  16. LAXOBERON [Concomitant]
     Dosage: UNK
     Route: 048

REACTIONS (6)
  - Cardiac failure congestive [Recovering/Resolving]
  - Pneumonia [Fatal]
  - Disseminated intravascular coagulation [Fatal]
  - Vascular insufficiency [Not Recovered/Not Resolved]
  - Pain [Recovering/Resolving]
  - Restlessness [Recovering/Resolving]
